FAERS Safety Report 9847517 (Version 2)
Quarter: 2014Q1

REPORT INFORMATION
  Report Type: Report from Study
  Country: US (occurrence: US)
  Receive Date: 20140128
  Receipt Date: 20140128
  Transmission Date: 20141002
  Serious: Yes (Other)
  Sender: FDA-Public Use
  Company Number: US-ROCHE-1334488

PATIENT
  Age: 17 Year
  Sex: Male
  Weight: 51.2 kg

DRUGS (14)
  1. NUTROPIN [Suspect]
     Indication: GROWTH HORMONE DEFICIENCY
     Dosage: NUSPIN
     Route: 058
     Dates: start: 20131201, end: 20131216
  2. SINGULAIR [Concomitant]
     Indication: BRONCHIAL HYPERREACTIVITY
  3. SINEMET [Concomitant]
     Route: 050
  4. PULMICORT [Concomitant]
     Indication: BRONCHIAL HYPERREACTIVITY
     Route: 050
  5. AZITHROMYCIN [Concomitant]
  6. CLONAZEPAM [Concomitant]
     Indication: CHOREA
     Route: 065
  7. GABAPENTIN [Concomitant]
     Indication: PAIN IN EXTREMITY
  8. LEVALBUTEROL [Concomitant]
     Indication: BRONCHIAL HYPERREACTIVITY
     Route: 050
  9. METADATE CD [Concomitant]
  10. NEXIUM [Concomitant]
     Indication: IMPAIRED GASTRIC EMPTYING
  11. PREDNISONE [Concomitant]
     Indication: BRONCHIAL HYPERREACTIVITY
  12. FUROSEMIDE [Concomitant]
     Indication: PULMONARY HYPERTENSION
  13. FLUTICASONE [Concomitant]
     Route: 050
  14. DIMETAPP SINUS (UNITED STATES) [Concomitant]

REACTIONS (2)
  - Dehydration [Recovered/Resolved]
  - Hypotension [Recovered/Resolved]
